FAERS Safety Report 24463540 (Version 1)
Quarter: 2024Q4

REPORT INFORMATION
  Report Type: Report from Study
  Country: US (occurrence: US)
  Receive Date: 20241018
  Receipt Date: 20241018
  Transmission Date: 20250115
  Serious: No
  Sender: ROCHE
  Company Number: US-ROCHE-3133654

PATIENT
  Age: 62 Year
  Sex: Female
  Weight: 88.0 kg

DRUGS (5)
  1. XOLAIR [Suspect]
     Active Substance: OMALIZUMAB
     Indication: Asthma
     Route: 058
  2. XOLAIR [Suspect]
     Active Substance: OMALIZUMAB
  3. ALBUTEROL SULFATE [Concomitant]
     Active Substance: ALBUTEROL SULFATE
     Dosage: 2 PUFF EVERY 6 HOURS AS NEEDED
     Dates: start: 20220414
  4. FLUTICASONE [Concomitant]
     Active Substance: FLUTICASONE
     Dates: start: 20220507
  5. EPINEPHRINE [Concomitant]
     Active Substance: EPINEPHRINE
     Dosage: 0.3 MG/ML INJECTION SYRINGE

REACTIONS (2)
  - Off label use [Unknown]
  - No adverse event [Unknown]
